FAERS Safety Report 8251773-1 (Version None)
Quarter: 2012Q2

REPORT INFORMATION
  Report Type: 
  Country: None (occurrence: None)
  Receive Date: 20120402
  Receipt Date: 20120328
  Transmission Date: 20120825
  Serious: Yes (Other)
  Sender: FDA-Public Use
  Company Number: US-PFIZER INC-2012080490

PATIENT
  Sex: Female

DRUGS (1)
  1. IBUPROFEN (ADVIL) [Suspect]
     Dosage: UNK

REACTIONS (4)
  - DRUG DEPENDENCE [None]
  - NEOPLASM MALIGNANT [None]
  - INCORRECT DOSE ADMINISTERED [None]
  - GALLBLADDER DISORDER [None]
